FAERS Safety Report 5721274-0 (Version None)
Quarter: 2008Q2

REPORT INFORMATION
  Report Type: 
  Country: None (occurrence: None)
  Receive Date: 20080429
  Receipt Date: 20080418
  Transmission Date: 20081010
  Serious: Yes (Other)
  Sender: FDA-Public Use
  Company Number: US-JNJFOC-20080405630

PATIENT
  Sex: Female
  Weight: 54.43 kg

DRUGS (1)
  1. FENTANYL TRANSDERMAL SYSTEM [Suspect]
     Indication: PAIN
     Route: 062

REACTIONS (3)
  - ADDISON'S DISEASE [None]
  - APPLICATION SITE RASH [None]
  - WRONG TECHNIQUE IN DRUG USAGE PROCESS [None]
